FAERS Safety Report 10263364 (Version 1)
Quarter: 2014Q2

REPORT INFORMATION
  Report Type: Spontaneous
  Country: GB (occurrence: GB)
  Receive Date: 20140626
  Receipt Date: 20140626
  Transmission Date: 20141212
  Serious: Yes (Other)
  Sender: FDA-Public Use
  Company Number: GB-MYLANLABS-2014S1014197

PATIENT
  Age: 49 Year
  Sex: Female
  Weight: 61.23 kg

DRUGS (7)
  1. CLARITHROMYCIN [Suspect]
     Indication: LOWER RESPIRATORY TRACT INFECTION
     Route: 048
     Dates: start: 20140504, end: 20140509
  2. PREDNISONE [Suspect]
     Indication: ASPIRIN-EXACERBATED RESPIRATORY DISEASE
     Dosage: 6 DAILY FOR 5 DAYS. TAKEN WITH CLARITHROMYCIN.
     Route: 048
     Dates: start: 20140504, end: 20140504
  3. AMLODIPINE [Concomitant]
  4. INDAPAMIDE [Concomitant]
  5. RAMIPRIL [Concomitant]
  6. DOSULEPIN [Concomitant]
  7. VENLAFAXINE [Concomitant]

REACTIONS (8)
  - Palpitations [Not Recovered/Not Resolved]
  - Fatigue [Recovered/Resolved with Sequelae]
  - Agitation [Recovered/Resolved with Sequelae]
  - Headache [Recovered/Resolved with Sequelae]
  - Restlessness [Recovered/Resolved with Sequelae]
  - Insomnia [Recovered/Resolved with Sequelae]
  - Tearfulness [Recovered/Resolved with Sequelae]
  - Withdrawal syndrome [Unknown]
